FAERS Safety Report 24543191 (Version 1)
Quarter: 2024Q4

REPORT INFORMATION
  Report Type: Report from Study
  Country: AR (occurrence: AR)
  Receive Date: 20241024
  Receipt Date: 20241024
  Transmission Date: 20250114
  Serious: Yes (Other)
  Sender: JOHNSON AND JOHNSON
  Company Number: AR-JNJFOC-20241057657

PATIENT
  Age: 63 Year
  Sex: Female
  Weight: 51 kg

DRUGS (1)
  1. SIMPONI [Suspect]
     Active Substance: GOLIMUMAB
     Indication: Rheumatoid arthritis
     Route: 041
     Dates: start: 20230113

REACTIONS (1)
  - Vein rupture [Recovering/Resolving]

NARRATIVE: CASE EVENT DATE: 20240418
